FAERS Safety Report 16791100 (Version 1)
Quarter: 2019Q3

REPORT INFORMATION
  Report Type: Report from Study
  Country: TN (occurrence: TN)
  Receive Date: 20190910
  Receipt Date: 20190910
  Transmission Date: 20191005
  Serious: Yes (Death, Hospitalization)
  Sender: FDA-Public Use
  Company Number: TN-SA-2019SA251048

PATIENT
  Age: 67 Year
  Sex: Female

DRUGS (4)
  1. DROSPIRENONE [Concomitant]
     Active Substance: DROSPIRENONE
  2. CLOPIDOGREL BISULFATE. [Suspect]
     Active Substance: CLOPIDOGREL BISULFATE
     Indication: CORONARY ANGIOPLASTY
     Dosage: 1 TABLET OF 75 MG, QD
     Route: 048
     Dates: start: 20181106
  3. KARDEGIC [Concomitant]
     Active Substance: ASPIRIN DL-LYSINE
  4. ATORVASTATIN [Concomitant]
     Active Substance: ATORVASTATIN

REACTIONS (3)
  - Cerebrovascular accident [Fatal]
  - Syncope [Unknown]
  - Coma [Unknown]

NARRATIVE: CASE EVENT DATE: 20190723
